FAERS Safety Report 22637295 (Version 1)
Quarter: 2023Q2

REPORT INFORMATION
  Report Type: Spontaneous
  Country: GB (occurrence: GB)
  Receive Date: 20230626
  Receipt Date: 20230626
  Transmission Date: 20230722
  Serious: Yes (Hospitalization)
  Sender: FDA-Public Use
  Company Number: None

PATIENT
  Age: 34 Year
  Sex: Male

DRUGS (3)
  1. RALTEGRAVIR POTASSIUM [Suspect]
     Active Substance: RALTEGRAVIR POTASSIUM
     Dosage: 60 X 600MG TABLETS
  2. TENOFOVIR [Concomitant]
     Active Substance: TENOFOVIR
  3. THIAMINE [Concomitant]
     Active Substance: THIAMINE
     Dosage: 100MG TABLETS, ONE TDS

REACTIONS (1)
  - Methaemoglobinaemia [Recovered/Resolved]
